FAERS Safety Report 5620628-0 (Version None)
Quarter: 2008Q1

REPORT INFORMATION
  Report Type: 
  Country: None (occurrence: None)
  Receive Date: 20080208
  Receipt Date: 20080129
  Transmission Date: 20080703
  Serious: Yes (Hospitalization, Other)
  Sender: FDA-Public Use
  Company Number: US-ABBOTT-08P-163-0435756-00

PATIENT
  Age: 22 Year
  Sex: Female

DRUGS (4)
  1. RITONAVIR [Suspect]
     Indication: HIV INFECTION
     Dates: start: 20061001
  2. ABACAVIR [Suspect]
     Indication: HIV INFECTION
     Dates: start: 20061001
  3. TENOFOVIR DISOPROXIL FUMARATE [Suspect]
     Indication: HIV INFECTION
     Dates: start: 20061001
  4. ATAZANAVIR SULFATE [Suspect]
     Indication: HIV INFECTION
     Dates: start: 20061001

REACTIONS (2)
  - IMMUNE RECONSTITUTION SYNDROME [None]
  - PROGRESSIVE MULTIFOCAL LEUKOENCEPHALOPATHY [None]
